FAERS Safety Report 16032989 (Version 1)
Quarter: 2019Q1

REPORT INFORMATION
  Report Type: Spontaneous
  Country: GB (occurrence: GB)
  Receive Date: 20190305
  Receipt Date: 20190305
  Transmission Date: 20190418
  Serious: Yes (Life-Threatening, Hospitalization)
  Sender: FDA-Public Use
  Company Number: GB-ACCORD-110257

PATIENT
  Age: 56 Year
  Sex: Male

DRUGS (23)
  1. ATRACURIUM [Concomitant]
     Active Substance: ATRACURIUM
  2. GLUCOSE [Concomitant]
     Active Substance: DEXTROSE
  3. RAMIPRIL. [Concomitant]
     Active Substance: RAMIPRIL
  4. HUMAN ACTRAPID [Concomitant]
     Active Substance: INSULIN HUMAN
  5. ALBUMIN HUMAN [Concomitant]
     Active Substance: ALBUMIN HUMAN
  6. LACTULOSE. [Concomitant]
     Active Substance: LACTULOSE
  7. PIPERACILLIN/TAZOBACTAM [Concomitant]
  8. ENOXAPARIN [Concomitant]
     Active Substance: ENOXAPARIN
  9. ASPIRIN. [Concomitant]
     Active Substance: ASPIRIN
  10. SIMVASTATIN. [Concomitant]
     Active Substance: SIMVASTATIN
  11. MEROPENEM. [Concomitant]
     Active Substance: MEROPENEM
     Indication: SEPSIS
  12. POTASSIUM CHLORIDE. [Concomitant]
     Active Substance: POTASSIUM CHLORIDE
  13. BISOPROLOL [Concomitant]
     Active Substance: BISOPROLOL
  14. SALBUTAMOL [Concomitant]
     Active Substance: ALBUTEROL
  15. ATORVASTATIN/ATORVASTATIN CALCIUM [Suspect]
     Active Substance: ATORVASTATIN CALCIUM
     Indication: ACUTE MYOCARDIAL INFARCTION
     Route: 051
     Dates: start: 20180819, end: 20180831
  16. HYDROCORTISONE. [Concomitant]
     Active Substance: HYDROCORTISONE
  17. REMIFENTANIL/REMIFENTANIL HYDROCHLORIDE [Concomitant]
  18. TICAGRELOR. [Concomitant]
     Active Substance: TICAGRELOR
  19. PHOSPHATE SANDOZ [Concomitant]
     Active Substance: SODIUM PHOSPHATE, MONOBASIC, ANHYDROUS
  20. RANITIDINE. [Concomitant]
     Active Substance: RANITIDINE
  21. CALCIUM GLUCONATE. [Concomitant]
     Active Substance: CALCIUM GLUCONATE
  22. FUROSEMIDE. [Concomitant]
     Active Substance: FUROSEMIDE
  23. PARACETAMOL [Concomitant]
     Active Substance: ACETAMINOPHEN

REACTIONS (7)
  - Asthenia [Unknown]
  - Urine output decreased [Unknown]
  - Acute kidney injury [Not Recovered/Not Resolved]
  - Sepsis [Unknown]
  - Chromaturia [Unknown]
  - Acute respiratory distress syndrome [Unknown]
  - Encephalopathy [None]

NARRATIVE: CASE EVENT DATE: 20180903
